FAERS Safety Report 23067555 (Version 5)
Quarter: 2025Q1

REPORT INFORMATION
  Report Type: Spontaneous
  Country: HR (occurrence: HR)
  Receive Date: 20231016
  Receipt Date: 20250221
  Transmission Date: 20250409
  Serious: Yes (Other)
  Sender: AMGEN
  Company Number: HR-BAXTER-2023BAX032289

PATIENT
  Age: 63 Year
  Sex: Male

DRUGS (29)
  1. CARFILZOMIB [Suspect]
     Active Substance: CARFILZOMIB
     Indication: Plasma cell myeloma
     Route: 065
     Dates: start: 202303
  2. CARFILZOMIB [Suspect]
     Active Substance: CARFILZOMIB
     Indication: Light chain disease
     Route: 065
     Dates: start: 202304, end: 202306
  3. PREDNISONE [Suspect]
     Active Substance: PREDNISONE
     Indication: Plasma cell myeloma
     Route: 065
     Dates: start: 202304, end: 202306
  4. PREDNISONE [Suspect]
     Active Substance: PREDNISONE
     Indication: Light chain disease
  5. VELCADE [Suspect]
     Active Substance: BORTEZOMIB
     Indication: Light chain disease
     Route: 065
     Dates: start: 202203, end: 202205
  6. VELCADE [Suspect]
     Active Substance: BORTEZOMIB
     Indication: Plasma cell myeloma
  7. CYCLOPHOSPHAMIDE [Suspect]
     Active Substance: CYCLOPHOSPHAMIDE
     Indication: Light chain disease
     Route: 065
     Dates: start: 202203, end: 202205
  8. CYCLOPHOSPHAMIDE [Suspect]
     Active Substance: CYCLOPHOSPHAMIDE
     Indication: Plasma cell myeloma
     Route: 065
     Dates: start: 202303, end: 202303
  9. MELPHALAN [Suspect]
     Active Substance: MELPHALAN
     Indication: Light chain disease
     Route: 065
     Dates: start: 202304, end: 202306
  10. MELPHALAN [Suspect]
     Active Substance: MELPHALAN
     Indication: Plasma cell myeloma
  11. DEXAMETHASONE [Suspect]
     Active Substance: DEXAMETHASONE
     Indication: Plasma cell myeloma
     Route: 065
     Dates: start: 202306, end: 202308
  12. DEXAMETHASONE [Suspect]
     Active Substance: DEXAMETHASONE
     Indication: Light chain disease
     Route: 065
     Dates: start: 202203, end: 202205
  13. DEXAMETHASONE [Suspect]
     Active Substance: DEXAMETHASONE
     Route: 065
     Dates: start: 202303
  14. DEXAMETHASONE [Suspect]
     Active Substance: DEXAMETHASONE
     Route: 065
     Dates: start: 202304, end: 202306
  15. DEXAMETHASONE [Suspect]
     Active Substance: DEXAMETHASONE
     Route: 065
     Dates: start: 202208, end: 202302
  16. ETOPOSIDE [Suspect]
     Active Substance: ETOPOSIDE
     Indication: Plasma cell myeloma
     Route: 065
     Dates: start: 202303, end: 202303
  17. ETOPOSIDE [Suspect]
     Active Substance: ETOPOSIDE
     Indication: Light chain disease
  18. IXAZOMIB [Suspect]
     Active Substance: IXAZOMIB
     Indication: Plasma cell myeloma
     Route: 065
     Dates: start: 202306, end: 202308
  19. IXAZOMIB [Suspect]
     Active Substance: IXAZOMIB
     Indication: Light chain disease
  20. CISPLATIN [Suspect]
     Active Substance: CISPLATIN
     Indication: Plasma cell myeloma
     Route: 065
     Dates: start: 202303, end: 202303
  21. CISPLATIN [Suspect]
     Active Substance: CISPLATIN
     Indication: Light chain disease
  22. DOXORUBICIN HYDROCHLORIDE [Suspect]
     Active Substance: DOXORUBICIN HYDROCHLORIDE
     Indication: Plasma cell myeloma
     Route: 065
     Dates: start: 202306, end: 202308
  23. DOXORUBICIN HYDROCHLORIDE [Suspect]
     Active Substance: DOXORUBICIN HYDROCHLORIDE
     Indication: Light chain disease
     Route: 065
     Dates: start: 202303, end: 202303
  24. VINCRISTINE [Suspect]
     Active Substance: VINCRISTINE
     Indication: Plasma cell myeloma
     Route: 065
     Dates: start: 202306, end: 202308
  25. VINCRISTINE [Suspect]
     Active Substance: VINCRISTINE
     Indication: Light chain disease
  26. LENALIDOMIDE [Suspect]
     Active Substance: LENALIDOMIDE
     Indication: Plasma cell myeloma
     Route: 065
     Dates: start: 202208, end: 202302
  27. LENALIDOMIDE [Suspect]
     Active Substance: LENALIDOMIDE
     Indication: Light chain disease
  28. DARATUMUMAB [Suspect]
     Active Substance: DARATUMUMAB
     Indication: Plasma cell myeloma
     Route: 065
     Dates: start: 202208, end: 202302
  29. DARATUMUMAB [Suspect]
     Active Substance: DARATUMUMAB
     Indication: Light chain disease
     Route: 065
     Dates: start: 202208, end: 202302

REACTIONS (5)
  - Light chain disease [Unknown]
  - Plasma cell myeloma [Unknown]
  - Therapy partial responder [Unknown]
  - Febrile neutropenia [Unknown]
  - Neutropenia [Unknown]

NARRATIVE: CASE EVENT DATE: 20230101
